FAERS Safety Report 12202667 (Version 2)
Quarter: 2016Q2

REPORT INFORMATION
  Report Type: Report from Study
  Country: DE (occurrence: DE)
  Receive Date: 20160322
  Receipt Date: 20160408
  Transmission Date: 20160815
  Serious: Yes (Other)
  Sender: FDA-Public Use
  Company Number: DE-GILEAD-2016-0199100

PATIENT
  Age: 53 Year
  Weight: 79 kg

DRUGS (2)
  1. SOFOSBUVIR [Suspect]
     Active Substance: SOFOSBUVIR
     Indication: HEPATITIS C
     Route: 065
  2. SIMEPREVIR [Suspect]
     Active Substance: SIMEPREVIR
     Indication: HEPATITIS C
     Dosage: UNK
     Route: 065

REACTIONS (6)
  - Transaminases increased [Unknown]
  - Hepatitis C [Unknown]
  - Treatment failure [Unknown]
  - Hepatic function abnormal [Unknown]
  - Viral mutation identified [Unknown]
  - Drug ineffective [Unknown]
